FAERS Safety Report 4421901-4 (Version None)
Quarter: 2004Q3

REPORT INFORMATION
  Report Type: 
  Country: None (occurrence: None)
  Receive Date: 20040804
  Receipt Date: 20040722
  Transmission Date: 20050211
  Serious: Yes (Hospitalization, Other)
  Sender: FDA-Public Use
  Company Number: 2004049934

PATIENT
  Age: 28 Year
  Sex: Male

DRUGS (10)
  1. ZOLOFT [Suspect]
     Indication: ILL-DEFINED DISORDER
     Dosage: 200 MG (200 MG, 1 IN 1 D)
     Dates: start: 20031031, end: 20040701
  2. LORAZEPAM [Concomitant]
  3. BUPROPION HYDROCHLORIDE [Concomitant]
  4. LANSOPRAZOLE [Concomitant]
  5. GABAPENTIN [Concomitant]
  6. METHADONE HCL [Concomitant]
  7. QUININE [Concomitant]
  8. OXYBUTYNIN HYDROCHLORIDE [Concomitant]
  9. METHYLPHENIDATE HCL [Concomitant]
  10. QUETIAPINE FUMARATE [Concomitant]

REACTIONS (3)
  - LUNG INFILTRATION [None]
  - PULMONARY THROMBOSIS [None]
  - PYREXIA [None]
